FAERS Safety Report 22541497 (Version 1)
Quarter: 2023Q2

REPORT INFORMATION
  Report Type: Spontaneous
  Country: US (occurrence: None)
  Receive Date: 20230608
  Receipt Date: 20230608
  Transmission Date: 20230722
  Serious: Yes (Other)
  Sender: FDA-Public Use
  Company Number: None

PATIENT
  Age: 49 Year
  Sex: Female
  Weight: 99 kg

DRUGS (1)
  1. EMTRICITABINE\TENOFOVIR DISOPROXIL FUMARATE [Suspect]
     Active Substance: EMTRICITABINE\TENOFOVIR DISOPROXIL FUMARATE
     Indication: Product used for unknown indication
     Dosage: FREQUENCY : DAILY;?
     Route: 048
     Dates: start: 20230531, end: 20230602

REACTIONS (6)
  - Vulvovaginal disorder [None]
  - Paraesthesia [None]
  - Anorectal disorder [None]
  - Restlessness [None]
  - Insomnia [None]
  - Therapy cessation [None]

NARRATIVE: CASE EVENT DATE: 20230602
